FAERS Safety Report 7712334-3 (Version None)
Quarter: 2011Q3

REPORT INFORMATION
  Report Type: 
  Country: None (occurrence: None)
  Receive Date: 20110826
  Receipt Date: 20110818
  Transmission Date: 20111222
  Serious: Yes (Hospitalization, Other)
  Sender: FDA-Public Use
  Company Number: BR-ROCHE-744034

PATIENT
  Age: 15 Year
  Sex: Female
  Weight: 45 kg

DRUGS (3)
  1. ISOTRETINOIN [Suspect]
     Route: 048
  2. SELENE [Concomitant]
     Route: 048
  3. ISOTRETINOIN [Suspect]
     Indication: ACNE
     Route: 048
     Dates: start: 20101001, end: 20101120

REACTIONS (8)
  - HAEMATOCRIT DECREASED [None]
  - GASTROOESOPHAGEAL HETEROTOPIA [None]
  - ABDOMINAL PAIN [None]
  - GASTROINTESTINAL HAEMORRHAGE [None]
  - HAEMOGLOBIN DECREASED [None]
  - HYPOVOLAEMIA [None]
  - COLITIS EROSIVE [None]
  - LYMPHANGIECTASIA [None]
